FAERS Safety Report 13993813 (Version 1)
Quarter: 2017Q3

REPORT INFORMATION
  Report Type: Spontaneous
  Country: ZA (occurrence: ZA)
  Receive Date: 20170920
  Receipt Date: 20170920
  Transmission Date: 20171128
  Serious: Yes (Death)
  Sender: FDA-Public Use
  Company Number: PHHY2017ZA138191

PATIENT
  Sex: Female

DRUGS (1)
  1. HEXARONE [Suspect]
     Active Substance: AMIODARONE
     Indication: HYPERTENSION
     Dosage: 200 MG
     Route: 048
     Dates: end: 201706

REACTIONS (1)
  - Death [Fatal]
